FAERS Safety Report 9753680 (Version 1)
Quarter: 2013Q4

REPORT INFORMATION
  Report Type: Spontaneous
  Country: US (occurrence: US)
  Receive Date: 20131213
  Receipt Date: 20131213
  Transmission Date: 20140711
  Serious: No
  Sender: FDA-Public Use
  Company Number: US-GILEAD-2009-0026061

PATIENT
  Sex: Female
  Weight: 46.27 kg

DRUGS (3)
  1. LETAIRIS [Suspect]
     Indication: PULMONARY ARTERIAL HYPERTENSION
     Route: 048
     Dates: start: 20090601
  2. COMBIVENT [Concomitant]
  3. OXYGEN [Concomitant]

REACTIONS (2)
  - Haemoptysis [Unknown]
  - Ear congestion [Unknown]
